FAERS Safety Report 9459312 (Version 3)
Quarter: 2013Q3

REPORT INFORMATION
  Report Type: Spontaneous
  Country: FR (occurrence: FR)
  Receive Date: 20130815
  Receipt Date: 20130916
  Transmission Date: 20140515
  Serious: Yes (Hospitalization)
  Sender: FDA-Public Use
  Company Number: FR-ROCHE-1261960

PATIENT
  Sex: Male
  Weight: 60 kg

DRUGS (5)
  1. ZELBORAF [Suspect]
     Indication: MALIGNANT MELANOMA
     Route: 048
     Dates: start: 201308, end: 201308
  2. SOLUPRED (FRANCE) [Concomitant]
     Route: 048
     Dates: start: 201306
  3. TOPALGIC (FRANCE) [Concomitant]
     Route: 048
     Dates: start: 201306
  4. ZOPHREN [Concomitant]
     Route: 048
     Dates: start: 201306
  5. INEXIUM [Concomitant]
     Route: 048
     Dates: start: 201306

REACTIONS (2)
  - Cerebral artery thrombosis [Unknown]
  - Cerebral infarction [Unknown]
